FAERS Safety Report 7414321-1 (Version None)
Quarter: 2011Q2

REPORT INFORMATION
  Report Type: 
  Country: None (occurrence: None)
  Receive Date: 20110414
  Receipt Date: 20110411
  Transmission Date: 20111010
  Serious: Yes (Other)
  Sender: FDA-Public Use
  Company Number: US-PFIZER INC-2011009913

PATIENT
  Sex: Female

DRUGS (7)
  1. XANAX [Concomitant]
     Indication: PANIC ATTACK
     Dosage: UNK
     Dates: start: 20060801
  2. XANAX [Concomitant]
     Indication: ANXIETY
  3. CHANTIX [Suspect]
     Indication: SMOKING CESSATION THERAPY
     Dosage: UNK
     Dates: start: 20070801, end: 20080801
  4. MICARDIS [Concomitant]
     Indication: BLOOD PRESSURE
     Dosage: UNK
     Dates: start: 20020101
  5. GLUCOTROL [Concomitant]
     Indication: DIABETES MELLITUS
     Dosage: UNK
     Dates: start: 20040101
  6. ZOLOFT [Concomitant]
     Indication: DEPRESSION
     Dosage: UNK
     Dates: start: 20070501, end: 20100201
  7. ACTOS [Concomitant]
     Indication: DIABETES MELLITUS
     Dosage: UNK
     Dates: start: 20070801

REACTIONS (6)
  - ANXIETY [None]
  - DEPRESSION [None]
  - ABNORMAL DREAMS [None]
  - MOOD ALTERED [None]
  - SUICIDAL IDEATION [None]
  - AGITATION [None]
